FAERS Safety Report 7344923-2 (Version None)
Quarter: 2011Q1

REPORT INFORMATION
  Report Type: 
  Country: None (occurrence: None)
  Receive Date: 20110310
  Receipt Date: 20110301
  Transmission Date: 20110831
  Serious: Yes (Hospitalization)
  Sender: FDA-Public Use
  Company Number: JP-ASTRAZENECA-2010SE45241

PATIENT
  Age: 64 Year
  Sex: Male
  Weight: 47 kg

DRUGS (10)
  1. FINIBAX [Suspect]
     Indication: FEBRILE NEUTROPENIA
     Route: 041
     Dates: start: 20100826
  2. FINIBAX [Suspect]
     Route: 041
     Dates: end: 20100903
  3. VANCOMYCIN [Suspect]
     Indication: FEBRILE NEUTROPENIA
     Route: 041
     Dates: start: 20100824, end: 20100903
  4. BLOPRESS [Suspect]
     Indication: HYPERTENSION
     Route: 048
     Dates: end: 20100928
  5. URALYT [Concomitant]
     Indication: HYPERURICAEMIA
     Route: 048
     Dates: start: 20100420
  6. MIYA-BM [Concomitant]
     Indication: GASTROINTESTINAL DISORDER
     Route: 048
     Dates: start: 20100420
  7. GASTER D [Suspect]
     Indication: GASTRITIS
     Route: 048
     Dates: start: 20100818, end: 20100906
  8. NEUQUINON [Concomitant]
     Indication: CARDIAC FAILURE CONGESTIVE
     Route: 048
     Dates: start: 20100420
  9. LOXOPROFEN [Suspect]
     Indication: PYREXIA
     Route: 048
     Dates: start: 20100824, end: 20100904
  10. FIRSTCIN INTRAVENOUS 1GM. [Concomitant]
     Indication: FEBRILE NEUTROPENIA
     Route: 041
     Dates: start: 20100824, end: 20100825

REACTIONS (3)
  - HERPES SIMPLEX OPHTHALMIC [None]
  - INTERSTITIAL LUNG DISEASE [None]
  - FEBRILE NEUTROPENIA [None]
